FAERS Safety Report 7712853-X (Version None)
Quarter: 2011Q3

REPORT INFORMATION
  Report Type: 
  Country: None (occurrence: None)
  Receive Date: 20110826
  Receipt Date: 20110818
  Transmission Date: 20111222
  Serious: Yes (Hospitalization, Other)
  Sender: FDA-Public Use
  Company Number: PHEH2011US02007

PATIENT
  Age: 25 Year
  Sex: Male
  Weight: 38.005 kg

DRUGS (1)
  1. TOBI [Suspect]
     Dosage: 300 MG, TWICE A DAY FOR 28 DAYS ON, THEN 28 DAYS OFF
     Dates: start: 20110708

REACTIONS (2)
  - BURNS SECOND DEGREE [None]
  - UPPER RESPIRATORY TRACT INFECTION [None]
